FAERS Safety Report 10200660 (Version 1)
Quarter: 2014Q2

REPORT INFORMATION
  Report Type: Spontaneous
  Country: US (occurrence: US)
  Receive Date: 20140528
  Receipt Date: 20140528
  Transmission Date: 20141212
  Serious: Yes (Other)
  Sender: FDA-Public Use
  Company Number: US-TEVA-426204USA

PATIENT
  Age: 21 Year
  Sex: Female

DRUGS (2)
  1. SEASONIQUE [Suspect]
  2. PRILOSEC [Concomitant]

REACTIONS (1)
  - Blood pressure increased [Unknown]
